FAERS Safety Report 4985773-1 (Version None)
Quarter: 2006Q2

REPORT INFORMATION
  Report Type: 
  Country: None (occurrence: None)
  Receive Date: 20060421
  Receipt Date: 20060412
  Transmission Date: 20061013
  Serious: Yes (Death, Hospitalization)
  Sender: FDA-Public Use
  Company Number: 2006050023

PATIENT
  Age: 64 Year
  Sex: Male

DRUGS (11)
  1. HEPARIN SODIUM [Suspect]
     Indication: ILL-DEFINED DISORDER
     Dosage: SUBCUTANEOUS
     Route: 058
  2. TRAMADOL HCL [Suspect]
     Indication: ILL-DEFINED DISORDER
  3. DEXTROPROPOXYPHENE (DEXTROPROPOXYPHENE) [Suspect]
     Indication: ILL-DEFINED DISORDER
  4. DIPYRIDAMOLE [Suspect]
     Indication: ILL-DEFINED DISORDER
  5. BUFLOMEDIL (BUFLOMEDIL) [Concomitant]
  6. CALCITONIN SALMON [Concomitant]
  7. BROMAZEPAM (BROMAZEPAM) [Concomitant]
  8. ACETAMINOPHEN [Concomitant]
  9. CODEINE (CODEINE) [Concomitant]
  10. NITROGLYCERIN [Concomitant]
  11. FUROSEMIDE [Concomitant]

REACTIONS (5)
  - ACTIVATED PARTIAL THROMBOPLASTIN TIME PROLONGED [None]
  - BLOOD BLISTER [None]
  - INJECTION SITE HAEMATOMA [None]
  - SEPTIC SHOCK [None]
  - SKIN LESION [None]
